FAERS Safety Report 6521156-0 (Version None)
Quarter: 2009Q4

REPORT INFORMATION
  Report Type: 
  Country: None (occurrence: None)
  Receive Date: 20091222
  Receipt Date: 20091208
  Transmission Date: 20100525
  Serious: No
  Sender: FDA-Public Use
  Company Number: 2009AP003822

PATIENT
  Age: 44 Year
  Sex: Female

DRUGS (1)
  1. FOSINOPRIL SODIUM [Suspect]
     Indication: HYPERTENSION
     Dosage: 10 MG;HS;PO
     Route: 048
     Dates: end: 20090913

REACTIONS (8)
  - BLOOD PRESSURE INCREASED [None]
  - BODY TEMPERATURE DECREASED [None]
  - CONDITION AGGRAVATED [None]
  - DRUG INEFFECTIVE [None]
  - HEART RATE INCREASED [None]
  - HYPOAESTHESIA [None]
  - MIGRAINE [None]
  - NAUSEA [None]
